FAERS Safety Report 14035408 (Version 1)
Quarter: 2017Q4

REPORT INFORMATION
  Report Type: Spontaneous
  Country: BR (occurrence: BR)
  Receive Date: 20171003
  Receipt Date: 20171003
  Transmission Date: 20180321
  Serious: Yes (Other)
  Sender: FDA-Public Use
  Company Number: BR-SA-2017SA183505

PATIENT
  Age: 28 Year
  Sex: Female

DRUGS (1)
  1. CLEXANE [Suspect]
     Active Substance: ENOXAPARIN SODIUM
     Indication: FACTOR V LEIDEN MUTATION
     Route: 065

REACTIONS (2)
  - Exposure during pregnancy [Unknown]
  - Abortion [Unknown]
